FAERS Safety Report 16815975 (Version 1)
Quarter: 2019Q3

REPORT INFORMATION
  Report Type: Spontaneous
  Country: US (occurrence: US)
  Receive Date: 20190917
  Receipt Date: 20190917
  Transmission Date: 20191005
  Serious: Yes (Death, Other)
  Sender: FDA-Public Use
  Company Number: US-ELI_LILLY_AND_COMPANY-US201909006761

PATIENT
  Age: 67 Year
  Sex: Female

DRUGS (1)
  1. DULOXETINE HYDROCHLORIDE. [Suspect]
     Active Substance: DULOXETINE HYDROCHLORIDE
     Indication: PRODUCT USED FOR UNKNOWN INDICATION
     Dosage: UNK, UNKNOWN
     Route: 048

REACTIONS (13)
  - Vomiting [Fatal]
  - Gastric mucosal lesion [Unknown]
  - Mental disorder [Unknown]
  - Confusional state [Unknown]
  - Nausea [Unknown]
  - Pulmonary oedema [Unknown]
  - Obesity [Unknown]
  - Balance disorder [Unknown]
  - Gastritis bacterial [Fatal]
  - Unresponsive to stimuli [Unknown]
  - Antidepressant drug level increased [Unknown]
  - Hepatic steatosis [Unknown]
  - Toxicity to various agents [Unknown]
